FAERS Safety Report 6034826-8 (Version None)
Quarter: 2009Q1

REPORT INFORMATION
  Report Type: 
  Country: None (occurrence: None)
  Receive Date: 20090108
  Receipt Date: 20090102
  Transmission Date: 20090719
  Serious: Yes (Other)
  Sender: FDA-Public Use
  Company Number: 039040

PATIENT
  Age: 32 Year
  Sex: Female
  Weight: 77.1 kg

DRUGS (2)
  1. PLAN B [Suspect]
     Indication: CONTRACEPTION
     Dosage: 1 TABLET, Q12HR, ORAL
     Route: 048
     Dates: start: 20090101, end: 20090102
  2. ORTHO TRI-CYCLEN [Concomitant]

REACTIONS (2)
  - ABDOMINAL PAIN [None]
  - HAEMATEMESIS [None]
